FAERS Safety Report 25785340 (Version 2)
Quarter: 2025Q4

REPORT INFORMATION
  Report Type: Spontaneous
  Country: US (occurrence: US)
  Receive Date: 20250910
  Receipt Date: 20251001
  Transmission Date: 20260118
  Serious: No
  Sender: CIPLA
  Company Number: US-CIPLA LTD.-2025US11012

PATIENT

DRUGS (1)
  1. ALBUTEROL [Suspect]
     Active Substance: ALBUTEROL
     Indication: Dyspnoea
     Dosage: 180 MICROGRAM, PRN (02 PUFFS EVERY 04-06 HOURS AS NEEDED)
     Dates: start: 20250826

REACTIONS (2)
  - Drug dose omission by device [Unknown]
  - Device delivery system issue [Unknown]

NARRATIVE: CASE EVENT DATE: 20250826
